FAERS Safety Report 15371303 (Version 3)
Quarter: 2019Q4

REPORT INFORMATION
  Report Type: Spontaneous
  Country: US (occurrence: US)
  Receive Date: 20180911
  Receipt Date: 20191030
  Transmission Date: 20200122
  Serious: Yes (Other)
  Sender: FDA-Public Use
  Company Number: US-PFIZER INC-2018366160

PATIENT
  Age: 63 Year
  Sex: Male

DRUGS (6)
  1. PROPRANOLOL [Concomitant]
     Active Substance: PROPRANOLOL HYDROCHLORIDE
     Indication: TREMOR
     Dosage: UNK
     Dates: start: 2009
  2. PROPRANOLOL [Concomitant]
     Active Substance: PROPRANOLOL HYDROCHLORIDE
     Indication: HEAD INJURY
  3. VIAGRA [Suspect]
     Active Substance: SILDENAFIL CITRATE
     Dosage: 100 MG, ONCE/TWICE A WEEK
     Route: 048
     Dates: start: 20131116, end: 20131216
  4. VIAGRA [Suspect]
     Active Substance: SILDENAFIL CITRATE
     Dosage: 100 MG, WEEKLY (ONCE A WEEK)
     Route: 048
     Dates: start: 20140904, end: 20170914
  5. VIAGRA [Suspect]
     Active Substance: SILDENAFIL CITRATE
     Indication: ERECTILE DYSFUNCTION
     Dosage: UNK
     Route: 048
     Dates: start: 201111, end: 201706
  6. VIAGRA [Suspect]
     Active Substance: SILDENAFIL CITRATE
     Dosage: 100 MG, ONCE/TWICE A WEEK
     Route: 048
     Dates: start: 20111102, end: 20120102

REACTIONS (2)
  - Depression [Unknown]
  - Malignant melanoma in situ [Unknown]

NARRATIVE: CASE EVENT DATE: 20160201
